FAERS Safety Report 6920368-1 (Version None)
Quarter: 2010Q3

REPORT INFORMATION
  Report Type: 
  Country: None (occurrence: None)
  Receive Date: 20100803
  Receipt Date: 20100324
  Transmission Date: 20110219
  Serious: Yes (Other)
  Sender: FDA-Public Use
  Company Number: 2010SP018636

PATIENT
  Age: 18 Month
  Sex: Female

DRUGS (2)
  1. INTRON A [Suspect]
     Indication: HEPATITIS B
     Dosage: 033 MIU UNK
     Dates: start: 20090801
  2. INTRON A [Suspect]
     Indication: HEPATITIS B
     Dosage: 033 MIU UNK
     Dates: start: 20090810

REACTIONS (2)
  - ALANINE AMINOTRANSFERASE INCREASED [None]
  - MALAISE [None]
